FAERS Safety Report 10060506 (Version 1)
Quarter: 2014Q2

REPORT INFORMATION
  Report Type: Report from Study
  Country: US (occurrence: US)
  Receive Date: 20140404
  Receipt Date: 20140404
  Transmission Date: 20141212
  Serious: Yes (Hospitalization)
  Sender: FDA-Public Use
  Company Number: PHEH2014US006466

PATIENT
  Age: 38 Year
  Sex: Female

DRUGS (20)
  1. GILENYA [Suspect]
     Indication: MULTIPLE SCLEROSIS
     Dosage: 0.5 MG, QD
     Route: 048
     Dates: start: 20140303, end: 20140312
  2. EPIPEN 2-PAK [Concomitant]
     Dosage: AEROSOL DELIVERY
  3. BUDESONIDE [Concomitant]
  4. CLARITHROMYCIN [Concomitant]
     Dosage: 500 MG, UNK
  5. LEVALBUTEROL [Concomitant]
  6. OXCARBAZEPINE [Concomitant]
     Dosage: 150 MG, UNK
  7. SUMATRIPTAN SUCCINATE [Concomitant]
  8. NUVIGIL [Concomitant]
  9. ZOLPIDEM TARTRATE [Concomitant]
  10. ACTHAR HP [Concomitant]
     Dosage: 80 U, UNK
     Route: 065
  11. DESMOPRESSIN [Concomitant]
     Dosage: 0.2 MG, UNK
  12. METOCLOPRAM [Concomitant]
     Dosage: 10 MG, UNK
  13. TIZANIDINE HYDROCHLORIDE [Concomitant]
     Dosage: 4 MG, UNK
  14. TRAMADOL HCL [Concomitant]
     Dosage: 50 MG, UNK
  15. VENLAFAXINE [Concomitant]
     Dosage: 75 MG, UNK
  16. BUTALBITAL [Concomitant]
  17. ACETAMINOPHEN [Concomitant]
  18. ZONISAMIDE [Concomitant]
  19. AMITRIPTYLINE HCL [Concomitant]
  20. ONDANSETRON HCL [Concomitant]

REACTIONS (2)
  - Blood pressure abnormal [Recovered/Resolved]
  - Heart rate abnormal [Recovered/Resolved]
